FAERS Safety Report 4431444-X (Version None)
Quarter: 2004Q3

REPORT INFORMATION
  Report Type: 
  Country: None (occurrence: None)
  Receive Date: 20040824
  Receipt Date: 20040719
  Transmission Date: 20050211
  Serious: No
  Sender: FDA-Public Use
  Company Number: DE-GLAXOSMITHKLINE-D0044238A

PATIENT
  Age: 9 Year
  Sex: Male
  Weight: 32 kg

DRUGS (2)
  1. LAMICTAL [Suspect]
     Indication: GRAND MAL CONVULSION
     Dosage: 35MG TWICE PER DAY
     Route: 048
     Dates: start: 20020801
  2. ORFIRIL [Concomitant]
     Indication: GRAND MAL CONVULSION
     Dosage: 750MG PER DAY
     Route: 048
     Dates: start: 20010701

REACTIONS (1)
  - BLISTER [None]
